FAERS Safety Report 8504281-4 (Version None)
Quarter: 2012Q3

REPORT INFORMATION
  Report Type: 
  Country: None (occurrence: None)
  Receive Date: 20120711
  Receipt Date: 20120706
  Transmission Date: 20120928
  Serious: Yes (Other)
  Sender: FDA-Public Use
  Company Number: PHHY2012PL038184

PATIENT
  Age: 3 Year
  Sex: Male

DRUGS (6)
  1. CYCLOSPORINE [Suspect]
     Indication: PROPHYLAXIS AGAINST GRAFT VERSUS HOST DISEASE
     Dosage: UNK UKN, UNK
  2. METHYLPREDNISOLONE [Concomitant]
     Indication: PROPHYLAXIS AGAINST GRAFT VERSUS HOST DISEASE
  3. FLUDARABINE PHOSPHATE [Concomitant]
     Indication: ACUTE LYMPHOCYTIC LEUKAEMIA
     Dosage: 5X30 MG/M2
  4. ATG-FRESENIUS [Concomitant]
     Indication: ACUTE LYMPHOCYTIC LEUKAEMIA
     Dosage: 3X20 MG/KG
  5. ORTHOCLONE OKT3 [Concomitant]
     Indication: PROPHYLAXIS AGAINST GRAFT VERSUS HOST DISEASE
     Dosage: UNK UKN, UNK
  6. BUSULFAN [Concomitant]
     Indication: ACUTE LYMPHOCYTIC LEUKAEMIA
     Dosage: 2X1MG/KG BODY WEIGHT
     Route: 042

REACTIONS (8)
  - VIRAL HAEMORRHAGIC CYSTITIS [None]
  - TRANSFUSION MICROCHIMERISM [None]
  - AGRANULOCYTOSIS [None]
  - LEUKOPENIA [None]
  - POST TRANSPLANT LYMPHOPROLIFERATIVE DISORDER [None]
  - ADENOVIRUS INFECTION [None]
  - BK VIRUS INFECTION [None]
  - MUCOSAL INFLAMMATION [None]
